FAERS Safety Report 12387609 (Version 2)
Quarter: 2016Q2

REPORT INFORMATION
  Report Type: Spontaneous
  Country: US (occurrence: US)
  Receive Date: 20160520
  Receipt Date: 20160530
  Transmission Date: 20160815
  Serious: Yes (Life-Threatening, Hospitalization, Other)
  Sender: FDA-Public Use
  Company Number: US-CIPLA LTD.-2016US05219

PATIENT

DRUGS (3)
  1. OXALIPLATIN. [Suspect]
     Active Substance: OXALIPLATIN
     Indication: HEPATOCELLULAR CARCINOMA
     Dosage: 100 MG/M2, EVERY 2 WEEKS
  2. GEMCITABINE [Suspect]
     Active Substance: GEMCITABINE\GEMCITABINE HYDROCHLORIDE
     Indication: HEPATOCELLULAR CARCINOMA
     Dosage: 1000 MG/M2,  EVERY 2 WEEKS
  3. RIFAXIMIN [Concomitant]
     Active Substance: RIFAXIMIN
     Indication: PROPHYLAXIS
     Dosage: UNK, BID
     Route: 065

REACTIONS (5)
  - Hyperammonaemic encephalopathy [Recovered/Resolved]
  - Proteinuria [Unknown]
  - Condition aggravated [Unknown]
  - Hypersensitivity [Unknown]
  - Transaminases increased [Unknown]
